FAERS Safety Report 6239130-0 (Version None)
Quarter: 2009Q2

REPORT INFORMATION
  Report Type: 
  Country: None (occurrence: None)
  Receive Date: 20090618
  Receipt Date: 20090610
  Transmission Date: 20091009
  Serious: Yes (Other)
  Sender: FDA-Public Use
  Company Number: CAR-2009-024

PATIENT
  Age: 8 Year
  Sex: Male

DRUGS (2)
  1. SUCRALFATE [Suspect]
     Indication: INFLAMMATION
     Dosage: TID POSTPRANDIAL ORAL
     Route: 048
  2. SUCRALFATE [Suspect]
     Indication: OESOPHAGEAL DISORDER
     Dosage: TID POSTPRANDIAL ORAL
     Route: 048

REACTIONS (4)
  - DIARRHOEA [None]
  - FATIGUE [None]
  - VOMITING [None]
  - WEIGHT DECREASED [None]
